FAERS Safety Report 5903542 (Version 3)
Quarter: 2015Q2

REPORT INFORMATION
  Report Type: Spontaneous
  Country: IN (occurrence: IN)
  Receive Date: 20051018
  Receipt Date: 20150427
  Transmission Date: 20150821
  Serious: Yes (Death, Other)
  Sender: FDA-Public Use
  Company Number: PHBS2005IN14913

PATIENT
  Age: 52 Year
  Sex: Male

DRUGS (7)
  1. CICLOSPORIN [Suspect]
     Active Substance: CYCLOSPORINE
     Indication: RENAL TRANSPLANT
     Dosage: 6 MG/KG, QD
     Route: 065
  2. AZATHIOPRINE. [Suspect]
     Active Substance: AZATHIOPRINE
     Indication: RENAL TRANSPLANT
     Dosage: 1.5 MG/KG/D
     Route: 065
  3. PREDNISOLONE. [Suspect]
     Active Substance: PREDNISOLONE
     Indication: RENAL TRANSPLANT
     Dosage: 50 MG, QD
     Route: 065
  4. CICLOSPORIN [Suspect]
     Active Substance: CYCLOSPORINE
     Indication: IMMUNOSUPPRESSION
     Dosage: 3-4 MG, QD
     Route: 065
  5. AZATHIOPRINE. [Suspect]
     Active Substance: AZATHIOPRINE
     Indication: IMMUNOSUPPRESSION
  6. PREDNISOLONE. [Suspect]
     Active Substance: PREDNISOLONE
     Indication: IMMUNOSUPPRESSION
     Dosage: 20 MG, QD
     Route: 065
  7. CHOP [Concomitant]
     Active Substance: CYCLOPHOSPHAMIDE\DOXORUBICIN\PREDNISONE\VINCRISTINE
     Indication: DIFFUSE LARGE B-CELL LYMPHOMA
     Route: 065

REACTIONS (11)
  - Post transplant lymphoproliferative disorder [Unknown]
  - Bone marrow failure [Unknown]
  - Orchitis [Unknown]
  - Pain [Unknown]
  - Diffuse large B-cell lymphoma [Unknown]
  - Scrotal ulcer [Unknown]
  - Wound [Unknown]
  - Sepsis [Fatal]
  - Pyrexia [Unknown]
  - Testicular infarction [Unknown]
  - Urinary fistula [Unknown]
